FAERS Safety Report 24793585 (Version 1)
Quarter: 2024Q4

REPORT INFORMATION
  Report Type: Spontaneous
  Country: CA (occurrence: CA)
  Receive Date: 20241231
  Receipt Date: 20241231
  Transmission Date: 20250115
  Serious: Yes (Other)
  Sender: PFIZER
  Company Number: CA-PFIZER INC-202400090041

PATIENT
  Age: 67 Year
  Sex: Male

DRUGS (2)
  1. RUXIENCE [Suspect]
     Active Substance: RITUXIMAB-PVVR
     Indication: Multiple sclerosis
     Dosage: 1000 MG, (DAY 1 AND DAY 15 )
     Route: 042
     Dates: start: 202402, end: 202402
  2. RUXIENCE [Suspect]
     Active Substance: RITUXIMAB-PVVR
     Indication: Neuromyelitis optica spectrum disorder
     Dosage: 1000 MG, EVERY 6 MONTH
     Route: 042
     Dates: start: 20240819

REACTIONS (2)
  - Xanthelasma [Unknown]
  - Off label use [Unknown]

NARRATIVE: CASE EVENT DATE: 20240101
